FAERS Safety Report 7930783-5 (Version None)
Quarter: 2011Q4

REPORT INFORMATION
  Report Type: 
  Country: None (occurrence: None)
  Receive Date: 20111121
  Receipt Date: 20111111
  Transmission Date: 20120403
  Serious: Yes (Other)
  Sender: FDA-Public Use
  Company Number: JP-GLAXOSMITHKLINE-B0698181A

PATIENT
  Sex: Male

DRUGS (4)
  1. URIEF [Concomitant]
     Route: 048
     Dates: end: 20091116
  2. DUTASTERIDE [Suspect]
     Indication: BENIGN PROSTATIC HYPERPLASIA
     Dosage: .5MG PER DAY
     Route: 048
     Dates: start: 20091016, end: 20091116
  3. FUROSEMIDE [Concomitant]
     Route: 065
     Dates: end: 20091116
  4. PERSANTIN [Concomitant]
     Route: 065
     Dates: end: 20091116

REACTIONS (10)
  - HEPATIC FUNCTION ABNORMAL [None]
  - MALAISE [None]
  - BLOOD ALBUMIN DECREASED [None]
  - GAMMA-GLUTAMYLTRANSFERASE INCREASED [None]
  - PROTEIN TOTAL DECREASED [None]
  - ALANINE AMINOTRANSFERASE INCREASED [None]
  - PROTHROMBIN TIME PROLONGED [None]
  - DECREASED APPETITE [None]
  - BLOOD ALKALINE PHOSPHATASE INCREASED [None]
  - ASPARTATE AMINOTRANSFERASE INCREASED [None]
